FAERS Safety Report 7723235-9 (Version None)
Quarter: 2011Q3

REPORT INFORMATION
  Report Type: 
  Country: None (occurrence: None)
  Receive Date: 20110901
  Receipt Date: 20110819
  Transmission Date: 20111222
  Serious: No
  Sender: FDA-Public Use
  Company Number: US-B.I. PHARMACEUTICALS,INC./RIDGEFIELD-2011-BP-17488BP

PATIENT
  Sex: Male
  Weight: 75.9 kg

DRUGS (8)
  1. SOTALOL HCL [Concomitant]
     Dates: start: 20080617
  2. LUTEIN [Concomitant]
  3. PRADAXA [Suspect]
     Indication: ATRIAL FIBRILLATION
     Dosage: 300 MG
     Route: 048
     Dates: start: 20110201, end: 20110407
  4. LOVAZA [Concomitant]
  5. MG [Concomitant]
  6. B 50 COMPLEX [Concomitant]
  7. UNSPECIFIED VITAMINS [Concomitant]
  8. GLUCOSAMINE/CHONDROITIN [Concomitant]

REACTIONS (3)
  - FLATULENCE [None]
  - BACK PAIN [None]
  - BONE PAIN [None]
